FAERS Safety Report 16148201 (Version 1)
Quarter: 2019Q2

REPORT INFORMATION
  Report Type: Spontaneous
  Country: CN (occurrence: CN)
  Receive Date: 20190402
  Receipt Date: 20190402
  Transmission Date: 20190711
  Serious: Yes (Other)
  Sender: FDA-Public Use
  Company Number: CN-PFIZER INC-2019131519

PATIENT
  Age: 76 Year
  Sex: Female

DRUGS (2)
  1. NORVASC [Suspect]
     Active Substance: AMLODIPINE BESYLATE
     Indication: HYPERTENSION
     Dosage: 5 MG, 1X/DAY
     Route: 048
     Dates: start: 20190116, end: 20190125
  2. EDARAVONE [Concomitant]
     Active Substance: EDARAVONE
     Indication: THERAPEUTIC PROCEDURE
     Dosage: 30 MG, 2X/DAY
     Route: 041
     Dates: start: 20190115, end: 20190125

REACTIONS (2)
  - Staphylococcal scalded skin syndrome [Unknown]
  - Oedema peripheral [Unknown]

NARRATIVE: CASE EVENT DATE: 20190123
